FAERS Safety Report 16723448 (Version 1)
Quarter: 2019Q3

REPORT INFORMATION
  Report Type: Spontaneous
  Country: FR (occurrence: FR)
  Receive Date: 20190821
  Receipt Date: 20190821
  Transmission Date: 20191005
  Serious: Yes (Other)
  Sender: FDA-Public Use
  Company Number: FR-TEVA-2019-FR-1094226

PATIENT
  Age: 20 Year
  Sex: Female
  Weight: 66 kg

DRUGS (9)
  1. IMOVANE [Concomitant]
     Active Substance: ZOPICLONE
     Dosage: 7.5 MG
     Route: 048
  2. DUPHALAC, SOLUTION BUVABLE EN SACHET DOSE [Concomitant]
     Dosage: 2 DOSAGE FORM
     Route: 048
  3. PROPRANOLOL (CHLORHYDRATE DE) [Concomitant]
     Active Substance: PROPRANOLOL HYDROCHLORIDE
     Dosage: 40 MG
     Route: 048
  4. CLOZAPINE. [Suspect]
     Active Substance: CLOZAPINE
     Indication: MENTAL DISORDER
     Dosage: 350 MG
     Route: 048
     Dates: start: 201903, end: 201905
  5. VALIUM [Concomitant]
     Active Substance: DIAZEPAM
     Dosage: 10 MG
     Route: 048
  6. LOXAPAC [Concomitant]
     Active Substance: LOXAPINE
     Route: 048
  7. SULFARLEM S 25 MG, COMPRIME ENROBE [Concomitant]
     Dosage: 75 MG
     Route: 048
  8. MESTINON 60 MG, COMPRIME ENROBE [Concomitant]
     Dosage: 60 MG
     Route: 048
  9. LANSOPRAZOLE. [Concomitant]
     Active Substance: LANSOPRAZOLE
     Dosage: 30 MG
     Route: 048

REACTIONS (4)
  - Apraxia [Recovered/Resolved]
  - Enuresis [Recovered/Resolved]
  - Sedation complication [Recovered/Resolved]
  - Antipsychotic drug level above therapeutic [Unknown]

NARRATIVE: CASE EVENT DATE: 201904
